FAERS Safety Report 17957933 (Version 1)
Quarter: 2020Q2

REPORT INFORMATION
  Report Type: Spontaneous
  Country: US (occurrence: US)
  Receive Date: 20200629
  Receipt Date: 20200629
  Transmission Date: 20200714
  Serious: No
  Sender: FDA-Public Use
  Company Number: US-SA-2020SA166868

PATIENT

DRUGS (1)
  1. DUPIXENT [Suspect]
     Active Substance: DUPILUMAB
     Indication: ASTHMA
     Dosage: QOW

REACTIONS (6)
  - Dyspnoea [Unknown]
  - Wheezing [Unknown]
  - Abdominal pain upper [Unknown]
  - Respiratory tract congestion [Unknown]
  - Pyrexia [Unknown]
  - Pain [Unknown]
